FAERS Safety Report 10619020 (Version 1)
Quarter: 2014Q4

REPORT INFORMATION
  Report Type: Spontaneous
  Country: PT (occurrence: None)
  Receive Date: 20141126
  Receipt Date: 20141126
  Transmission Date: 20150529
  Serious: Yes (Other)
  Sender: FDA-Public Use
  Company Number: ADR-2014-02229

PATIENT
  Age: 33 Year
  Sex: Male

DRUGS (2)
  1. BACLOFEN. [Suspect]
     Active Substance: BACLOFEN
     Indication: HEREDITARY SPASTIC PARAPLEGIA
     Dosage: UNK
  2. DIAZEPAM. [Suspect]
     Active Substance: DIAZEPAM
     Indication: HEREDITARY SPASTIC PARAPLEGIA

REACTIONS (8)
  - Clonus [None]
  - Parkinsonism [None]
  - Tremor [None]
  - Reflexes abnormal [None]
  - Myoclonus [None]
  - Autonomic nervous system imbalance [None]
  - Nervous system disorder [None]
  - Dystonia [None]

NARRATIVE: CASE EVENT DATE: 20141101
